FAERS Safety Report 21153245 (Version 1)
Quarter: 2022Q3

REPORT INFORMATION
  Report Type: Spontaneous
  Country: US (occurrence: US)
  Receive Date: 20220731
  Receipt Date: 20220731
  Transmission Date: 20221027
  Serious: No
  Sender: FDA-Public Use
  Company Number: US-BoehringerIngelheim-2022-BI-184572

PATIENT
  Sex: Female

DRUGS (3)
  1. JARDIANCE [Suspect]
     Active Substance: EMPAGLIFLOZIN
     Indication: Type 2 diabetes mellitus
  2. JARDIANCE [Suspect]
     Active Substance: EMPAGLIFLOZIN
     Indication: Weight decreased
  3. Opzempic [Concomitant]
     Indication: Product used for unknown indication

REACTIONS (4)
  - Weight decreased [Unknown]
  - Blood pressure systolic decreased [Unknown]
  - Urinary tract infection [Unknown]
  - Off label use [Unknown]
